FAERS Safety Report 23313141 (Version 2)
Quarter: 2023Q4

REPORT INFORMATION
  Report Type: Spontaneous
  Country: US (occurrence: US)
  Receive Date: 20231219
  Receipt Date: 20231222
  Transmission Date: 20240110
  Serious: No
  Sender: FDA-Public Use
  Company Number: US-PFIZER INC-PV202300200991

PATIENT
  Age: 64 Year
  Sex: Female
  Weight: 68.7 kg

DRUGS (1)
  1. LORBRENA [Suspect]
     Active Substance: LORLATINIB
     Indication: Lung neoplasm malignant
     Dosage: 100 MG= 1 TABLET, TABLET, PO (PER ORAL), DAILY,
     Route: 048

REACTIONS (1)
  - Dysphagia [Unknown]
